FAERS Safety Report 10577828 (Version 1)
Quarter: 2014Q4

REPORT INFORMATION
  Report Type: Spontaneous
  Country: IN (occurrence: IN)
  Receive Date: 20141111
  Receipt Date: 20141111
  Transmission Date: 20150529
  Serious: Yes (Other)
  Sender: FDA-Public Use
  Company Number: PHHY2014IN144015

PATIENT
  Age: 36 Year
  Sex: Male
  Weight: 31 kg

DRUGS (2)
  1. ISONIAZID. [Suspect]
     Active Substance: ISONIAZID
     Indication: PULMONARY TUBERCULOSIS
     Route: 065
  2. ETHAMBUTOL [Concomitant]
     Active Substance: ETHAMBUTOL HYDROCHLORIDE
     Indication: PULMONARY TUBERCULOSIS
     Route: 065

REACTIONS (17)
  - Substance-induced psychotic disorder [Recovering/Resolving]
  - Neuropathy peripheral [Recovering/Resolving]
  - Asthenia [Recovering/Resolving]
  - Sinus tachycardia [Recovering/Resolving]
  - Breath sounds abnormal [Recovering/Resolving]
  - Wheezing [Recovering/Resolving]
  - Hypotonia [Recovering/Resolving]
  - Muscular weakness [Recovering/Resolving]
  - Vitamin B6 deficiency [Recovering/Resolving]
  - Sensory loss [Recovering/Resolving]
  - Pallor [Recovering/Resolving]
  - Intentional self-injury [Recovering/Resolving]
  - Aggression [Recovering/Resolving]
  - Abnormal behaviour [Recovering/Resolving]
  - Decreased interest [Recovering/Resolving]
  - Reflexes abnormal [Recovering/Resolving]
  - Dehydration [Recovering/Resolving]
